FAERS Safety Report 8111652-7 (Version None)
Quarter: 2011Q4

REPORT INFORMATION
  Report Type: 
  Country: None (occurrence: None)
  Receive Date: 20111223
  Receipt Date: 20101115
  Transmission Date: 20120403
  Serious: Yes (Other)
  Sender: FDA-Public Use
  Company Number: PHHY2010US74116

PATIENT
  Age: 57 Year
  Sex: Female

DRUGS (2)
  1. CLOZARIL [Suspect]
     Indication: PSYCHOTIC DISORDER
     Dosage: 50 MG, QD 75 MG QD, (AT 6 PM)
     Dates: start: 20101025, end: 20101101
  2. DEPAKOTE [Concomitant]

REACTIONS (5)
  - CHEST PAIN [None]
  - ASPARTATE AMINOTRANSFERASE INCREASED [None]
  - BLOOD ALKALINE PHOSPHATASE INCREASED [None]
  - ALANINE AMINOTRANSFERASE INCREASED [None]
  - TACHYCARDIA [None]
